FAERS Safety Report 6768661-X (Version None)
Quarter: 2010Q2

REPORT INFORMATION
  Report Type: 
  Country: None (occurrence: None)
  Receive Date: 20100614
  Receipt Date: 20100602
  Transmission Date: 20101027
  Serious: Yes (Life-Threatening, Hospitalization)
  Sender: FDA-Public Use
  Company Number: BE-ASTRAZENECA-2010SE01744

PATIENT
  Age: 24284 Day
  Sex: Male

DRUGS (5)
  1. NEXIUM [Suspect]
     Indication: REFLUX OESOPHAGITIS
     Route: 048
     Dates: start: 20081202
  2. NEXIUM [Suspect]
     Route: 048
  3. DURAPROX [Suspect]
  4. ZANIDIP [Concomitant]
  5. BETAHISTINE [Concomitant]

REACTIONS (12)
  - BLADDER CATHETERISATION [None]
  - CEREBRAL HAEMORRHAGE [None]
  - COMA [None]
  - DIARRHOEA [None]
  - GASTROINTESTINAL CANDIDIASIS [None]
  - HEPATIC CYST [None]
  - HYPERNATRAEMIA [None]
  - LUNG INFECTION [None]
  - PNEUMONIA [None]
  - REFLUX OESOPHAGITIS [None]
  - RESPIRATORY FAILURE [None]
  - THROMBOCYTOPENIA [None]
